FAERS Safety Report 8073505-2 (Version None)
Quarter: 2012Q1

REPORT INFORMATION
  Report Type: 
  Country: None (occurrence: None)
  Receive Date: 20120126
  Receipt Date: 20120121
  Transmission Date: 20120608
  Serious: No
  Sender: FDA-Public Use
  Company Number: US-BAYER-2012-007904

PATIENT
  Sex: Female

DRUGS (3)
  1. MOTRIN [Concomitant]
     Dosage: 800 MG, UNK
  2. ALEVE (CAPLET) [Suspect]
     Route: 048
  3. ANTIBIOTICS [Concomitant]
     Dosage: UNK

REACTIONS (1)
  - NO ADVERSE EVENT [None]
